FAERS Safety Report 19668400 (Version 2)
Quarter: 2021Q3

REPORT INFORMATION
  Report Type: Spontaneous
  Country: US (occurrence: US)
  Receive Date: 20210806
  Receipt Date: 20210928
  Transmission Date: 20211014
  Serious: No
  Sender: FDA-Public Use
  Company Number: US-ALXN-A202108783

PATIENT
  Sex: Male

DRUGS (2)
  1. SOLIRIS [Suspect]
     Active Substance: ECULIZUMAB
     Indication: MYASTHENIA GRAVIS
     Dosage: UNK
     Route: 065
  2. SOLIRIS [Suspect]
     Active Substance: ECULIZUMAB
     Dosage: 1200 MG, UNK (SECOND DOSE)
     Route: 065

REACTIONS (6)
  - Weight increased [Unknown]
  - Fluid retention [Unknown]
  - Fatigue [Unknown]
  - Palpitations [Unknown]
  - Dyspnoea [Unknown]
  - Peripheral swelling [Unknown]
